FAERS Safety Report 18054198 (Version 8)
Quarter: 2021Q2

REPORT INFORMATION
  Report Type: Spontaneous
  Country: US (occurrence: US)
  Receive Date: 20200722
  Receipt Date: 20210617
  Transmission Date: 20210717
  Serious: No
  Sender: FDA-Public Use
  Company Number: US-BIOGEN-2020BI00900221

PATIENT
  Sex: Female

DRUGS (4)
  1. TYSABRI [Suspect]
     Active Substance: NATALIZUMAB
     Indication: MULTIPLE SCLEROSIS
     Route: 065
     Dates: start: 20161031, end: 20170802
  2. TYSABRI [Suspect]
     Active Substance: NATALIZUMAB
     Dosage: INFUSED OVER 1 HOUR
     Route: 065
     Dates: end: 20200101
  3. TYSABRI [Suspect]
     Active Substance: NATALIZUMAB
     Route: 065
     Dates: start: 20210301
  4. COVID?19 VACCINE NOS. [Suspect]
     Active Substance: COVID-19 VACCINE NOS
     Indication: COVID-19 PROPHYLAXIS
     Dosage: PATIENT HAD NOT CONFIRMED FIRST DOSE DATE [BUT 2ND DOSE WOULD BE ON 08?JUN?2021].
     Route: 065

REACTIONS (13)
  - Cognitive disorder [Not Recovered/Not Resolved]
  - Vaccination complication [Unknown]
  - Urinary tract infection [Recovered/Resolved]
  - Prescribed underdose [Unknown]
  - Urinary incontinence [Not Recovered/Not Resolved]
  - Thyroid disorder [Not Recovered/Not Resolved]
  - Vitamin B12 decreased [Not Recovered/Not Resolved]
  - Fungal infection [Recovered/Resolved]
  - Hypovitaminosis [Not Recovered/Not Resolved]
  - Angle closure glaucoma [Not Recovered/Not Resolved]
  - Multiple sclerosis [Not Recovered/Not Resolved]
  - Nervousness [Unknown]
  - Pollakiuria [Not Recovered/Not Resolved]
